FAERS Safety Report 24101202 (Version 1)
Quarter: 2024Q3

REPORT INFORMATION
  Report Type: Spontaneous
  Country: JP (occurrence: JP)
  Receive Date: 20240717
  Receipt Date: 20240717
  Transmission Date: 20241016
  Serious: Yes (Death)
  Sender: AMGEN
  Company Number: JP-DSJP-DSJ-2024-135176

PATIENT
  Sex: Male

DRUGS (3)
  1. BEVACIZUMAB [Suspect]
     Active Substance: BEVACIZUMAB
     Indication: Carcinoid tumour in the large intestine
     Dosage: UNK (FIVE COURSES)
     Route: 065
  2. CAPECITABINE [Concomitant]
     Active Substance: CAPECITABINE
     Indication: Carcinoid tumour in the large intestine
     Dosage: UNK (FIVE COURSES)
     Route: 065
  3. OXALIPLATIN [Concomitant]
     Active Substance: OXALIPLATIN
     Indication: Carcinoid tumour in the large intestine
     Dosage: UNK (FIVE COURSES)
     Route: 065

REACTIONS (1)
  - Metastases to peritoneum [Fatal]
